FAERS Safety Report 8138064-4 (Version None)
Quarter: 2012Q1

REPORT INFORMATION
  Report Type: 
  Country: None (occurrence: None)
  Receive Date: 20120103
  Receipt Date: 20111028
  Transmission Date: 20120608
  Serious: No
  Sender: FDA-Public Use
  Company Number: AE-2011-001509

PATIENT
  Age: 20 Year
  Sex: Female
  Weight: 85.2762 kg

DRUGS (6)
  1. PEGINTERFERON (PEG-INTERFERON ALFA-2A) [Concomitant]
  2. DEPO (MEDORXYPROGESTERONE ACETATE) [Concomitant]
  3. INCIVEK [Suspect]
     Dosage: 2250 MG (750 MG, 1 IN 8 HR), ORAL
     Route: 048
     Dates: start: 20110829
  4. RISPERDAL [Concomitant]
  5. RIBAVIRIN [Concomitant]
  6. MOTRIN [Concomitant]

REACTIONS (3)
  - VULVOVAGINAL PRURITUS [None]
  - ANORECTAL DISCOMFORT [None]
  - ANAL PRURITUS [None]
